FAERS Safety Report 6703556-9 (Version None)
Quarter: 2010Q2

REPORT INFORMATION
  Report Type: 
  Country: None (occurrence: None)
  Receive Date: 20100430
  Receipt Date: 20100419
  Transmission Date: 20101027
  Serious: Yes (Hospitalization, Other)
  Sender: FDA-Public Use
  Company Number: CH-PFIZER INC-2010030838

PATIENT
  Age: 70 Year
  Sex: Male
  Weight: 135 kg

DRUGS (15)
  1. ALDACTONE [Suspect]
     Dosage: 25 MG, 1X/DAY
     Route: 048
     Dates: start: 20091231, end: 20100105
  2. LASIX [Suspect]
     Dosage: 100 MG, 1X/DAY
     Route: 040
     Dates: start: 20091231, end: 20100115
  3. TORSEMIDE [Concomitant]
     Dosage: 5 MG, 1X/DAY
     Dates: start: 20100119, end: 20100202
  4. TORSEMIDE [Concomitant]
     Dosage: 10 MG, 1X/DAY
     Dates: start: 20100203, end: 20100210
  5. TORSEMIDE [Concomitant]
     Dosage: 20 MG, 1X/DAY
     Dates: start: 20100211
  6. KONAKION [Concomitant]
     Dosage: 5 MG, SINGLE
     Route: 040
     Dates: start: 20100107, end: 20100107
  7. LAXOBERON [Concomitant]
     Dosage: 15 GTT, 1X/DAY
     Route: 048
     Dates: start: 20100107
  8. LISINOPRIL [Concomitant]
     Dosage: 10 MG, 1X/DAY
     Route: 048
     Dates: start: 20091231, end: 20100112
  9. LISINOPRIL [Concomitant]
     Dosage: UNK
     Dates: start: 20100210
  10. ASPIRIN [Concomitant]
     Dosage: 100 MG, 1X/DAY
     Dates: start: 20090701
  11. GLUCOPHAGE [Concomitant]
     Dosage: 500 MG, 2X/DAY
  12. GLUCOPHAGE [Concomitant]
     Dosage: 850 MG, 2X/DAY
     Dates: start: 20100201
  13. METOPROLOL SUCCINATE [Concomitant]
     Dosage: 50 MG, 1X/DAY
     Route: 048
  14. PLAVIX [Concomitant]
     Dosage: 75 MG, 1X/DAY
     Route: 048
     Dates: start: 20090101, end: 20100112
  15. SORTIS [Concomitant]
     Dosage: 20 MG, 1X/DAY

REACTIONS (3)
  - ERYTHEMA [None]
  - PRURITUS [None]
  - SKIN NECROSIS [None]
